FAERS Safety Report 5206708-2 (Version None)
Quarter: 2006Q4

REPORT INFORMATION
  Report Type: 
  Country: None (occurrence: None)
  Receive Date: 20061030
  Receipt Date: 20060829
  Transmission Date: 20070319
  Serious: No
  Sender: FDA-Public Use
  Company Number: 256519

PATIENT
  Age: 56 Year
  Weight: 86.2 kg

DRUGS (3)
  1. LEVEMIR [Suspect]
     Indication: INSULIN-REQUIRING TYPE II DIABETES MELLITUS
     Dosage: 80 IU, QD, SUBCUTANEOUS
     Route: 058
     Dates: start: 20060706, end: 20060829
  2. HUMALOG /00030501/(INSULIN) [Concomitant]
  3. GLUCOFORMIN (METFORMIN HYDROCHLORIDE) TABLET [Concomitant]

REACTIONS (2)
  - INJECTION SITE MASS [None]
  - INJECTION SITE SWELLING [None]
